FAERS Safety Report 10019313 (Version 2)
Quarter: 2014Q4

REPORT INFORMATION
  Report Type: Spontaneous
  Country: CH (occurrence: CH)
  Receive Date: 20140318
  Receipt Date: 20141217
  Transmission Date: 20150528
  Serious: Yes (Hospitalization, Other)
  Sender: FDA-Public Use
  Company Number: CH-PFIZER INC-2014072749

PATIENT
  Age: 54 Year
  Sex: Female

DRUGS (13)
  1. LEPONEX ^NOVARTIS^ [Interacting]
     Active Substance: CLOZAPINE
     Dosage: 100-150 MG, DAILY
     Route: 048
     Dates: start: 20140131, end: 20140202
  2. LEPONEX ^NOVARTIS^ [Interacting]
     Active Substance: CLOZAPINE
     Dosage: 300 MG, 1X/DAY
     Route: 048
     Dates: start: 20140208, end: 20140212
  3. LYRICA [Suspect]
     Active Substance: PREGABALIN
     Indication: SCHIZOPHRENIA, PARANOID TYPE
     Dosage: 100 MG, 2X/DAY, LONG TERM
     Route: 048
     Dates: end: 20140212
  4. LEPONEX ^NOVARTIS^ [Interacting]
     Active Substance: CLOZAPINE
     Dosage: 50-75 MG, DAILY
     Route: 048
     Dates: start: 20140129, end: 20140130
  5. LEPONEX ^NOVARTIS^ [Interacting]
     Active Substance: CLOZAPINE
     Dosage: 225-250 MG, DAILY
     Route: 048
     Dates: start: 20140205, end: 20140206
  6. ZYPREXA [Interacting]
     Active Substance: OLANZAPINE
     Dosage: 10 MG, DAILY
     Route: 048
     Dates: start: 20140205, end: 20140206
  7. LEPONEX ^NOVARTIS^ [Interacting]
     Active Substance: CLOZAPINE
     Indication: SCHIZOPHRENIA, PARANOID TYPE
     Dosage: 12.5-25 MG, DAILY
     Route: 048
     Dates: start: 20140127, end: 20140128
  8. ZYPREXA [Interacting]
     Active Substance: OLANZAPINE
     Indication: SCHIZOPHRENIA, PARANOID TYPE
     Dosage: 20 MG, DAILY
     Route: 048
     Dates: end: 20140130
  9. ZYPREXA [Interacting]
     Active Substance: OLANZAPINE
     Dosage: UNK
     Route: 048
  10. LEPONEX ^NOVARTIS^ [Interacting]
     Active Substance: CLOZAPINE
     Dosage: 275 MG, DAILY
     Route: 048
     Dates: start: 20140207, end: 20140207
  11. LEPONEX ^NOVARTIS^ [Interacting]
     Active Substance: CLOZAPINE
     Dosage: 175-200 MG, DAILY
     Route: 048
     Dates: start: 20140203, end: 20140204
  12. ZYPREXA [Interacting]
     Active Substance: OLANZAPINE
     Dosage: 15 MG, DAILY
     Route: 048
     Dates: start: 20140131, end: 20140204
  13. ZYPREXA [Interacting]
     Active Substance: OLANZAPINE
     Dosage: 5 MG, DAILY
     Route: 048
     Dates: start: 20140207, end: 20140211

REACTIONS (16)
  - Restlessness [Unknown]
  - Alanine aminotransferase increased [Not Recovered/Not Resolved]
  - Blood alkaline phosphatase increased [Not Recovered/Not Resolved]
  - Gamma-glutamyltransferase increased [Not Recovered/Not Resolved]
  - Aspartate aminotransferase increased [Not Recovered/Not Resolved]
  - Blood creatine phosphokinase increased [Not Recovered/Not Resolved]
  - Toxicity to various agents [Recovered/Resolved]
  - Mixed liver injury [Not Recovered/Not Resolved]
  - Gait disturbance [Unknown]
  - Liver disorder [Not Recovered/Not Resolved]
  - Product use issue [Unknown]
  - Drug interaction [Recovered/Resolved]
  - Tachycardia [Unknown]
  - Asthenia [Unknown]
  - Antipsychotic drug level increased [Recovered/Resolved]
  - Pneumonia aspiration [Unknown]

NARRATIVE: CASE EVENT DATE: 20140208
